FAERS Safety Report 12190969 (Version 1)
Quarter: 2016Q1

REPORT INFORMATION
  Report Type: Spontaneous
  Country: US (occurrence: None)
  Receive Date: 20160317
  Receipt Date: 20160317
  Transmission Date: 20160526
  Serious: Yes (Other)
  Sender: FDA-Public Use
  Company Number: None

PATIENT
  Age: 35 Year
  Sex: Female
  Weight: 97.98 kg

DRUGS (12)
  1. SINGULAIR [Concomitant]
     Active Substance: MONTELUKAST SODIUM
  2. XOPONEX NEB [Concomitant]
  3. JANUVIA [Concomitant]
     Active Substance: SITAGLIPTIN PHOSPHATE
  4. REQUIP [Concomitant]
     Active Substance: ROPINIROLE HYDROCHLORIDE
  5. METFORMIN [Concomitant]
     Active Substance: METFORMIN HYDROCHLORIDE
  6. AMARYL [Concomitant]
     Active Substance: GLIMEPIRIDE
  7. IBUPROFEN. [Concomitant]
     Active Substance: IBUPROFEN
  8. TRILIPEX [Concomitant]
  9. ESCITALOPRAM 20MG UNKNOWN [Suspect]
     Active Substance: ESCITALOPRAM OXALATE
     Route: 048
  10. ZOFRAN [Concomitant]
     Active Substance: ONDANSETRON HYDROCHLORIDE
  11. LANTUS [Concomitant]
     Active Substance: INSULIN GLARGINE
  12. LORATADINE. [Concomitant]
     Active Substance: LORATADINE

REACTIONS (3)
  - Urticaria [None]
  - Suicidal ideation [None]
  - Nausea [None]

NARRATIVE: CASE EVENT DATE: 20120101
